FAERS Safety Report 15328707 (Version 1)
Quarter: 2018Q3

REPORT INFORMATION
  Report Type: Spontaneous
  Country: GB (occurrence: GB)
  Receive Date: 20180829
  Receipt Date: 20180829
  Transmission Date: 20181010
  Serious: Yes (Other)
  Sender: FDA-Public Use
  Company Number: GB-TEVA-2018-GB-949596

PATIENT
  Age: 73 Year
  Sex: Male

DRUGS (1)
  1. CO?AMOXICLAV [Suspect]
     Active Substance: AMOXICILLIN\CLAVULANATE POTASSIUM
     Indication: LOWER RESPIRATORY TRACT INFECTION
     Dosage: 1875 MILLIGRAM DAILY;
     Route: 048
     Dates: end: 20180731

REACTIONS (1)
  - Liver function test increased [Recovering/Resolving]
